FAERS Safety Report 9847042 (Version 1)
Quarter: 2014Q1

REPORT INFORMATION
  Report Type: Spontaneous
  Country: FR (occurrence: FR)
  Receive Date: 20140127
  Receipt Date: 20140127
  Transmission Date: 20141002
  Serious: Yes (Hospitalization, Other)
  Sender: FDA-Public Use
  Company Number: FR-PFIZER INC-2014019307

PATIENT
  Age: 76 Year
  Sex: Male
  Weight: 75 kg

DRUGS (1)
  1. TORISEL [Suspect]
     Indication: MANTLE CELL LYMPHOMA
     Dosage: 25 MG, WEEKLY
     Dates: start: 20110914

REACTIONS (1)
  - Cardio-respiratory arrest [Recovered/Resolved with Sequelae]
